FAERS Safety Report 17412193 (Version 1)
Quarter: 2020Q1

REPORT INFORMATION
  Report Type: Report from Study
  Country: US (occurrence: US)
  Receive Date: 20200213
  Receipt Date: 20200213
  Transmission Date: 20200409
  Serious: Yes (Other)
  Sender: FDA-Public Use
  Company Number: US-UNITED THERAPEUTICS-UNT-2020-002246

PATIENT
  Age: 74 Year
  Sex: Female
  Weight: 69.48 kg

DRUGS (2)
  1. TREPROSTINIL SODIUM (INHALED) [Suspect]
     Active Substance: TREPROSTINIL SODIUM
     Indication: PULMONARY ARTERIAL HYPERTENSION
     Dosage: 18-54 ?G, QID
     Dates: start: 20180726
  2. DILTIAZEM. [Concomitant]
     Active Substance: DILTIAZEM
     Indication: PRODUCT USED FOR UNKNOWN INDICATION
     Dosage: UNK
     Route: 065

REACTIONS (7)
  - Loss of consciousness [Unknown]
  - Concussion [Unknown]
  - Fall [Recovered/Resolved with Sequelae]
  - Cough [Unknown]
  - Paranasal sinus hypersecretion [Unknown]
  - Nasopharyngitis [Unknown]
  - Headache [Not Recovered/Not Resolved]

NARRATIVE: CASE EVENT DATE: 20200205
